FAERS Safety Report 13141045 (Version 1)
Quarter: 2017Q1

REPORT INFORMATION
  Report Type: Report from Study
  Country: CO (occurrence: CO)
  Receive Date: 20170123
  Receipt Date: 20170123
  Transmission Date: 20170428
  Serious: Yes (Death, Hospitalization, Other)
  Sender: FDA-Public Use
  Company Number: PHHY2017CO009025

PATIENT
  Age: 66 Year
  Sex: Female

DRUGS (1)
  1. SIGNIFOR [Suspect]
     Active Substance: PASIREOTIDE
     Indication: CUSHING^S SYNDROME
     Dosage: 0.6 MG, BID
     Route: 058
     Dates: start: 20161010

REACTIONS (4)
  - Mental disorder [Fatal]
  - Respiratory arrest [Fatal]
  - Sedation [Fatal]
  - Pain [Unknown]

NARRATIVE: CASE EVENT DATE: 20170117
